FAERS Safety Report 8579818-X (Version None)
Quarter: 2012Q3

REPORT INFORMATION
  Report Type: 
  Country: None (occurrence: None)
  Receive Date: 20120808
  Receipt Date: 20120517
  Transmission Date: 20120928
  Serious: No
  Sender: FDA-Public Use
  Company Number: US-MUTUAL PHARMACEUTICAL COMPANY, INC.-DXCY20120005

PATIENT
  Age: 31 Year
  Sex: Female

DRUGS (4)
  1. DOXYCYCLINE HCL [Suspect]
     Indication: ACNE
     Route: 048
     Dates: start: 20120501
  2. DIFFERIN [Suspect]
     Indication: ACNE
     Dates: start: 20120501
  3. CETAPHIL GENTLE SKIN CLEANSER [Concomitant]
     Indication: REMOVAL OF INERT MATTER FROM SKIN OR SUBCUTANEOUS TISSUE
     Route: 061
     Dates: start: 20100101
  4. CLEAN AND CLEAR 10% BENZOYL PEROXIDE [Concomitant]
     Indication: REMOVAL OF INERT MATTER FROM SKIN OR SUBCUTANEOUS TISSUE
     Route: 061
     Dates: start: 20100101

REACTIONS (5)
  - APPLICATION SITE DRYNESS [None]
  - ERYTHEMA [None]
  - SKIN TIGHTNESS [None]
  - FACIAL PAIN [None]
  - APPLICATION SITE IRRITATION [None]
